FAERS Safety Report 8094421-6 (Version None)
Quarter: 2012Q1

REPORT INFORMATION
  Report Type: 
  Country: None (occurrence: None)
  Receive Date: 20120130
  Receipt Date: 20120119
  Transmission Date: 20120608
  Serious: Yes (Hospitalization)
  Sender: FDA-Public Use
  Company Number: US-AMGEN-USASP2012004106

PATIENT
  Age: 56 Year
  Sex: Male

DRUGS (1)
  1. ENBREL [Suspect]
     Indication: PSORIASIS
     Dosage: UNK

REACTIONS (10)
  - PERICARDITIS [None]
  - ATRIAL FIBRILLATION [None]
  - OBESITY [None]
  - HYPERTENSION [None]
  - PERICARDIAL EFFUSION [None]
  - GASTROOESOPHAGEAL REFLUX DISEASE [None]
  - PNEUMONIA [None]
  - TYPE 2 DIABETES MELLITUS [None]
  - PLEURAL EFFUSION [None]
  - SLEEP APNOEA SYNDROME [None]
